FAERS Safety Report 17864689 (Version 3)
Quarter: 2025Q3

REPORT INFORMATION
  Report Type: Report from Study
  Country: US (occurrence: US)
  Receive Date: 20200605
  Receipt Date: 20250826
  Transmission Date: 20251021
  Serious: Yes (Other)
  Sender: AUROBINDO
  Company Number: US-MYLANLABS-2020M1054319

PATIENT
  Sex: Female

DRUGS (6)
  1. SOTALOL HYDROCHLORIDE [Suspect]
     Active Substance: SOTALOL HYDROCHLORIDE
     Indication: Tachycardia foetal
     Route: 064
  2. FLECAINIDE [Suspect]
     Active Substance: FLECAINIDE
     Indication: Tachycardia foetal
     Route: 064
  3. FLECAINIDE [Suspect]
     Active Substance: FLECAINIDE
     Route: 064
  4. ADENOSINE [Suspect]
     Active Substance: ADENOSINE
     Indication: Tachycardia foetal
     Route: 064
  5. AMIODARONE [Suspect]
     Active Substance: AMIODARONE
     Indication: Tachycardia foetal
     Route: 064
  6. AMIODARONE [Suspect]
     Active Substance: AMIODARONE
     Route: 064

REACTIONS (2)
  - Treatment failure [Unknown]
  - Foetal exposure during pregnancy [Recovered/Resolved]
